FAERS Safety Report 15130861 (Version 2)
Quarter: 2018Q3

REPORT INFORMATION
  Report Type: Spontaneous
  Country: GR (occurrence: GR)
  Receive Date: 20180711
  Receipt Date: 20180907
  Transmission Date: 20181010
  Serious: Yes (Disabling)
  Sender: FDA-Public Use
  Company Number: GR-JNJFOC-20180710674

PATIENT
  Age: 41 Year
  Sex: Female
  Weight: 103 kg

DRUGS (2)
  1. LEFLUNOMIDE. [Concomitant]
     Active Substance: LEFLUNOMIDE
     Indication: PSORIATIC ARTHROPATHY
     Route: 048
     Dates: start: 20170901, end: 20180601
  2. STELARA [Suspect]
     Active Substance: USTEKINUMAB
     Indication: PSORIATIC ARTHROPATHY
     Route: 058
     Dates: start: 20160601, end: 20180201

REACTIONS (2)
  - Meningioma [Recovered/Resolved]
  - Monoparesis [Recovered/Resolved]

NARRATIVE: CASE EVENT DATE: 20180201
